FAERS Safety Report 7241342-4 (Version None)
Quarter: 2011Q1

REPORT INFORMATION
  Report Type: 
  Country: None (occurrence: None)
  Receive Date: 20110120
  Receipt Date: 20110120
  Transmission Date: 20110831
  Serious: Yes (Other)
  Sender: FDA-Public Use
  Company Number: None

PATIENT
  Age: 71 Year
  Sex: Female
  Weight: 81.6475 kg

DRUGS (1)
  1. ACTONEL [Suspect]
     Indication: OSTEOPOROSIS
     Dosage: 1 TABLET EACH MONTH PO
     Route: 048
     Dates: start: 20101011, end: 20101211

REACTIONS (7)
  - PAIN IN EXTREMITY [None]
  - ARTHRALGIA [None]
  - HEADACHE [None]
  - SENSORY DISTURBANCE [None]
  - FEELING ABNORMAL [None]
  - NECK PAIN [None]
  - HYPOAESTHESIA [None]
